FAERS Safety Report 20751381 (Version 1)
Quarter: 2022Q2

REPORT INFORMATION
  Report Type: Spontaneous
  Country: FR (occurrence: FR)
  Receive Date: 20220426
  Receipt Date: 20220426
  Transmission Date: 20220721
  Serious: Yes (Hospitalization)
  Sender: FDA-Public Use
  Company Number: None

PATIENT
  Age: 86 Year
  Sex: Male
  Weight: 71 kg

DRUGS (12)
  1. BISOPROLOL FUMARATE [Suspect]
     Active Substance: BISOPROLOL FUMARATE
     Indication: Hypertension
     Dosage: UNIT DOSE 5MG,THERAPY START DATE : ASKU,FREQUENCY TIME 1 DAYS
     Route: 048
     Dates: end: 20220315
  2. GABAPENTIN [Suspect]
     Active Substance: GABAPENTIN
     Indication: Product used for unknown indication
     Dosage: UNIT DOSE 600MG,THERAPY START DATE : ASKU,FREQUENCY TIME 1 DAYS
     Route: 048
     Dates: end: 20220315
  3. TAMSULOSIN [Suspect]
     Active Substance: TAMSULOSIN
     Indication: Benign prostatic hyperplasia
     Dosage: THERAPY START DATE : ASKU, UNIT DOSE 0.4MG,FREQUENCY TIME 1 DAYS
     Route: 048
     Dates: end: 20220318
  4. FUROSEMIDE [Suspect]
     Active Substance: FUROSEMIDE
     Indication: Hypertension
     Dosage: THERAPY START DATE : ASKU, UNIT DOSE 500MG,FREQUENCY TIME 1 DAYS
     Route: 048
     Dates: end: 20220314
  5. HYDROCHLOROTHIAZIDE [Suspect]
     Active Substance: HYDROCHLOROTHIAZIDE
     Indication: Hypertension
     Dosage: THERAPY START DATE : ASKU, UNIT DOSE 6.5MG,FREQUENCY TIME 1 DAYS
     Route: 048
     Dates: end: 20220315
  6. ESCITALOPRAM [Concomitant]
     Active Substance: ESCITALOPRAM OXALATE
  7. ALLOPURINOL [Concomitant]
     Active Substance: ALLOPURINOL
  8. DOLIPRANE [Concomitant]
     Active Substance: ACETAMINOPHEN
  9. MONTELUKAST SODIUM [Concomitant]
     Active Substance: MONTELUKAST SODIUM
  10. REPAGLINIDE [Concomitant]
     Active Substance: REPAGLINIDE
  11. FLUTICASONE FUROATE\VILANTEROL TRIFENATATE [Concomitant]
     Active Substance: FLUTICASONE FUROATE\VILANTEROL TRIFENATATE
     Dosage: RELVAR ELLIPTA 184 MICROGRAMS/22 MICROGRAMS, INHALATION POWDER, IN SINGLE-DOSE CONTAINER
  12. CHOLECALCIFEROL [Concomitant]
     Active Substance: CHOLECALCIFEROL

REACTIONS (1)
  - Orthostatic hypotension [Recovered/Resolved]

NARRATIVE: CASE EVENT DATE: 20220301
